FAERS Safety Report 10298134 (Version 2)
Quarter: 2016Q4

REPORT INFORMATION
  Report Type: Spontaneous
  Country: IN (occurrence: IN)
  Receive Date: 20140711
  Receipt Date: 20161230
  Transmission Date: 20170206
  Serious: Yes (Other)
  Sender: FDA-Public Use
  Company Number: IN-PFIZER INC-2014190786

PATIENT
  Age: 45 Year
  Sex: Male

DRUGS (5)
  1. FRESH FROZEN PLASMA [Concomitant]
     Active Substance: HUMAN PLASMA
     Indication: COAGULOPATHY
     Dosage: UNK
  2. CYKLOKAPRON [Suspect]
     Active Substance: TRANEXAMIC ACID
     Indication: HAEMORRHAGE
     Dosage: 1 G, UNK (OVER 10 MIN)
  3. THYROXIN [Concomitant]
     Active Substance: LEVOTHYROXINE
     Indication: HYPOTHYROIDISM
     Dosage: UNK
  4. CRYOPRECIPITATE [Concomitant]
     Active Substance: CRYOPRECIPITATED ANTIHEMOPHILIC FACTOR (HUMAN)
     Indication: COAGULOPATHY
     Dosage: UNK
  5. VITAMIN K [Concomitant]
     Active Substance: PHYTONADIONE
     Indication: COAGULOPATHY
     Dosage: UNK

REACTIONS (8)
  - Electrocardiogram ST segment depression [Unknown]
  - Tachycardia [Unknown]
  - Ventricular hypokinesia [Unknown]
  - Arteriospasm coronary [Unknown]
  - Chest discomfort [Unknown]
  - Bronchospasm [Unknown]
  - Hypersensitivity [Unknown]
  - Urticaria [Unknown]
